FAERS Safety Report 14998295 (Version 1)
Quarter: 2018Q2

REPORT INFORMATION
  Report Type: Spontaneous
  Country: US (occurrence: US)
  Receive Date: 20180611
  Receipt Date: 20180611
  Transmission Date: 20180711
  Serious: No
  Sender: FDA-Public Use
  Company Number: US-ELI_LILLY_AND_COMPANY-US201806003272

PATIENT
  Sex: Female

DRUGS (3)
  1. TRESIBA [Suspect]
     Active Substance: INSULIN DEGLUDEC
     Indication: DIABETES MELLITUS
     Dosage: UNK, EACH EVENING
     Route: 065
  2. HUMALOG [Suspect]
     Active Substance: INSULIN LISPRO
     Indication: DIABETES MELLITUS
     Dosage: 10 U, AFTER EACH MEAL
     Route: 058
     Dates: start: 2013
  3. HUMALOG [Suspect]
     Active Substance: INSULIN LISPRO
     Dosage: 10 U, AFTER EACH MEAL
     Route: 058
     Dates: start: 2013

REACTIONS (2)
  - Blood glucose decreased [Recovered/Resolved]
  - Glycosylated haemoglobin increased [Unknown]
